FAERS Safety Report 25298042 (Version 1)
Quarter: 2025Q2

REPORT INFORMATION
  Report Type: Spontaneous
  Country: US (occurrence: US)
  Receive Date: 20250512
  Receipt Date: 20250512
  Transmission Date: 20250716
  Serious: No
  Sender: BOEHRINGER INGELHEIM
  Company Number: US-Komodo Health-a23aa000007NJp7AAG

PATIENT
  Age: 53 Year
  Sex: Female

DRUGS (1)
  1. MIRAPEX [Suspect]
     Active Substance: PRAMIPEXOLE DIHYDROCHLORIDE
     Indication: Restless legs syndrome

REACTIONS (12)
  - Panic attack [Unknown]
  - Obsessive-compulsive disorder [Unknown]
  - Pain [Unknown]
  - Thinking abnormal [Unknown]
  - Irritability [Unknown]
  - Photophobia [Unknown]
  - Hyperacusis [Unknown]
  - Insomnia [Unknown]
  - Feeling abnormal [Unknown]
  - Gambling disorder [Unknown]
  - Self-destructive behaviour [Unknown]
  - Alcohol use [Unknown]
